FAERS Safety Report 9105394 (Version 2)
Quarter: 2013Q1

REPORT INFORMATION
  Report Type: Spontaneous
  Country: FR (occurrence: FR)
  Receive Date: 20130220
  Receipt Date: 20130314
  Transmission Date: 20140127
  Serious: Yes (Hospitalization)
  Sender: FDA-Public Use
  Company Number: FR-BAXTER-2013BAX005681

PATIENT
  Age: 44 Year
  Sex: Male

DRUGS (10)
  1. ENDOXAN 2000 MG, LYOPHILISAT POUR SOLUTION INJECTABLE [Suspect]
     Indication: LYMPHOMA
     Route: 042
     Dates: start: 20121012, end: 20121029
  2. VINCRISTINE SULFATE [Suspect]
     Indication: LYMPHOMA
     Route: 042
     Dates: start: 20121012, end: 20121029
  3. KIDROLASE [Suspect]
     Indication: LYMPHOMA
     Route: 042
     Dates: start: 20121022, end: 20121029
  4. METHOTREXATE [Suspect]
     Indication: LYMPHOMA
     Route: 037
     Dates: start: 20121008, end: 20121022
  5. CYTARABINE [Suspect]
     Indication: LYMPHOMA
     Route: 037
     Dates: start: 20121015, end: 20121022
  6. METHYLPREDNISOLONE [Suspect]
     Indication: LYMPHOMA
     Route: 037
     Dates: start: 20121015, end: 20121022
  7. CERUBIDINE [Suspect]
     Indication: LYMPHOMA
     Route: 042
     Dates: start: 20121016, end: 20121022
  8. INNOHEP [Concomitant]
     Indication: PRODUCT USED FOR UNKNOWN INDICATION
     Dosage: 0.8
     Route: 065
     Dates: start: 20121029
  9. ACUPAN [Concomitant]
     Indication: PRODUCT USED FOR UNKNOWN INDICATION
     Route: 065
  10. TOPALGIC [Concomitant]
     Indication: PRODUCT USED FOR UNKNOWN INDICATION
     Route: 065

REACTIONS (3)
  - Cerebral venous thrombosis [Recovering/Resolving]
  - Headache [Recovering/Resolving]
  - Venous thrombosis limb [Unknown]
